FAERS Safety Report 22530128 (Version 1)
Quarter: 2023Q2

REPORT INFORMATION
  Report Type: Spontaneous
  Country: US (occurrence: None)
  Receive Date: 20230606
  Receipt Date: 20230606
  Transmission Date: 20230721
  Serious: Yes (Disabling)
  Sender: FDA-Public Use
  Company Number: None

PATIENT
  Age: 76 Year
  Sex: Female
  Weight: 50.8 kg

DRUGS (2)
  1. RECLAST [Suspect]
     Active Substance: ZOLEDRONIC ACID
     Indication: Osteoporosis
  2. RECLAST [Suspect]
     Active Substance: ZOLEDRONIC ACID
     Indication: Osteopenia

REACTIONS (7)
  - Infusion related reaction [None]
  - Muscle spasms [None]
  - Pain [None]
  - Weight bearing difficulty [None]
  - Osteoarthritis [None]
  - Insomnia [None]
  - Disability [None]

NARRATIVE: CASE EVENT DATE: 20220819
